FAERS Safety Report 7568145-5 (Version None)
Quarter: 2011Q2

REPORT INFORMATION
  Report Type: 
  Country: None (occurrence: None)
  Receive Date: 20110623
  Receipt Date: 20110617
  Transmission Date: 20111010
  Serious: Yes (Hospitalization)
  Sender: FDA-Public Use
  Company Number: IT-TEVA-287333ISR

PATIENT
  Sex: Female

DRUGS (1)
  1. LOSARTAN POTASSIUM [Suspect]

REACTIONS (3)
  - HYPERKALAEMIA [None]
  - HYPERPARATHYROIDISM SECONDARY [None]
  - RENAL FAILURE ACUTE [None]
